FAERS Safety Report 6502766-3 (Version None)
Quarter: 2009Q4

REPORT INFORMATION
  Report Type: 
  Country: None (occurrence: None)
  Receive Date: 20091127
  Receipt Date: 20090903
  Transmission Date: 20100525
  Serious: No
  Sender: FDA-Public Use
  Company Number: 001677

PATIENT
  Sex: Female
  Weight: 81.8 kg

DRUGS (7)
  1. LACOSAMIDE [Suspect]
     Dosage: SEE IMAGE
     Route: 048
     Dates: end: 20090902
  2. LACOSAMIDE [Suspect]
     Dosage: SEE IMAGE
     Route: 048
     Dates: start: 20090801
  3. ASPIRIN [Concomitant]
  4. VITAMIN B COMPLEX CAP [Concomitant]
  5. FOLIC ACID [Concomitant]
  6. CLONAZEPAM [Concomitant]
  7. ALPRAZOLAM [Concomitant]

REACTIONS (3)
  - RASH [None]
  - SKIN HYPERPIGMENTATION [None]
  - WRONG TECHNIQUE IN DRUG USAGE PROCESS [None]
